FAERS Safety Report 12713174 (Version 1)
Quarter: 2016Q3

REPORT INFORMATION
  Report Type: Spontaneous
  Country: US (occurrence: US)
  Receive Date: 20160902
  Receipt Date: 20160902
  Transmission Date: 20161109
  Serious: Yes (Hospitalization)
  Sender: FDA-Public Use
  Company Number: US-ACTELION-A-US2016-141649

PATIENT
  Age: 72 Year
  Sex: Female

DRUGS (12)
  1. LEVOTHYROXINE. [Concomitant]
     Active Substance: LEVOTHYROXINE
  2. POTASSIUM [Concomitant]
     Active Substance: POTASSIUM
  3. LEXAPRO [Concomitant]
     Active Substance: ESCITALOPRAM OXALATE
  4. LIPITOR [Concomitant]
     Active Substance: ATORVASTATIN CALCIUM
  5. TRACLEER [Suspect]
     Active Substance: BOSENTAN
     Indication: PULMONARY ARTERIAL HYPERTENSION
     Dosage: 125 MG, BID
     Route: 048
     Dates: start: 20120710
  6. AVANDIA [Concomitant]
     Active Substance: ROSIGLITAZONE MALEATE
  7. NIFEDIPINE. [Concomitant]
     Active Substance: NIFEDIPINE
  8. FUROSEMIDE. [Concomitant]
     Active Substance: FUROSEMIDE
  9. WARFARIN [Concomitant]
     Active Substance: WARFARIN
  10. UPTRAVI [Concomitant]
     Active Substance: SELEXIPAG
  11. ADCIRCA [Concomitant]
     Active Substance: TADALAFIL
  12. HYDROXYCHLOROQUINE [Concomitant]
     Active Substance: HYDROXYCHLOROQUINE

REACTIONS (1)
  - Pulmonary oedema [Recovered/Resolved]

NARRATIVE: CASE EVENT DATE: 20160807
